FAERS Safety Report 4366767-6 (Version None)
Quarter: 2004Q2

REPORT INFORMATION
  Report Type: 
  Country: None (occurrence: None)
  Receive Date: 20040526
  Receipt Date: 20040526
  Transmission Date: 20050107
  Serious: Yes (Other)
  Sender: FDA-Public Use
  Company Number: None

PATIENT
  Age: 62 Year
  Sex: Female
  Weight: 106.6 kg

DRUGS (30)
  1. NYSTATIN [Suspect]
  2. ACETAMINOPHEN [Concomitant]
  3. HYDROCORTISONE [Concomitant]
  4. DOXYCYCLINE HYCLATE [Concomitant]
  5. DOXYCYCLINE HYCLATE [Concomitant]
  6. SUGARLESS (GUAIFENESIN/DM) COUGH SYRUP [Concomitant]
  7. PSEDUOEPHEDRINE [Concomitant]
  8. MILK OF MAGNESIA SUSP [Concomitant]
  9. LACTASE ENZYME [Concomitant]
  10. FLUNISOLIDE (AEROBID) INH [Concomitant]
  11. DOCUSATE SODIUM [Concomitant]
  12. ALOH/MGOH/SIMTH XTRA STRENGTH [Concomitant]
  13. ALBUTEROL/IPRATROPIUM [Concomitant]
  14. SPIRONOLACTONE [Concomitant]
  15. SIMVASTATIN [Concomitant]
  16. SENNA [Concomitant]
  17. OMEPRAZOLE [Concomitant]
  18. GABAPENTIN [Concomitant]
  19. FUROSEMIDE [Concomitant]
  20. DIVALPROEX SODIUM [Concomitant]
  21. CITALOPRAM [Concomitant]
  22. ASPIRIN [Concomitant]
  23. ACETAMINOPHEN AND HYDROCODONE BITARTRATE [Concomitant]
  24. LORAZEPAM [Concomitant]
  25. HYDROXYPROPYL METHYLCELLULOSE [Concomitant]
  26. FENTANYL [Concomitant]
  27. RISPERIDONE [Concomitant]
  28. DLANZAPINE [Concomitant]
  29. NYSTATIN 1000 UNIT /GM/TAC [Concomitant]
  30. AMOXICILLIN [Concomitant]

REACTIONS (1)
  - RASH [None]
